FAERS Safety Report 18925974 (Version 2)
Quarter: 2021Q1

REPORT INFORMATION
  Report Type: Report from Study
  Country: None (occurrence: US)
  Receive Date: 20210223
  Receipt Date: 20210302
  Transmission Date: 20210420
  Serious: Yes (Hospitalization, Other)
  Sender: FDA-Public Use
  Company Number: US-ABBVIE-21K-163-3742715-00

PATIENT
  Age: 29 Year
  Sex: Female

DRUGS (2)
  1. HUMIRA [Suspect]
     Active Substance: ADALIMUMAB
     Indication: ANKYLOSING SPONDYLITIS
     Dosage: CITRATE FREE
     Route: 058
  2. REMICADE [Concomitant]
     Active Substance: INFLIXIMAB
     Indication: PRODUCT USED FOR UNKNOWN INDICATION

REACTIONS (8)
  - Colitis ulcerative [Unknown]
  - Inflammatory marker increased [Unknown]
  - Acute kidney injury [Unknown]
  - Substance-induced psychotic disorder [Unknown]
  - Megacolon [Unknown]
  - Anaemia [Unknown]
  - Dehydration [Unknown]
  - Pain [Unknown]

NARRATIVE: CASE EVENT DATE: 20210216
